FAERS Safety Report 8306854-0 (Version None)
Quarter: 2012Q2

REPORT INFORMATION
  Report Type: 
  Country: None (occurrence: None)
  Receive Date: 20120419
  Receipt Date: 20120403
  Transmission Date: 20120825
  Serious: Yes (Hospitalization)
  Sender: FDA-Public Use
  Company Number: DSA_56056_2012

PATIENT
  Sex: Female

DRUGS (24)
  1. AMOXICILILN [Concomitant]
  2. IZOFRAN /00955301/ [Concomitant]
  3. ELIDEL [Suspect]
     Indication: DERMATITIS
     Dosage: (DF TOPICAL)
     Route: 061
     Dates: start: 20050101
  4. PIPERACILLIN [Concomitant]
  5. SEPTRA [Concomitant]
  6. OMNICEF /00497602/ [Concomitant]
  7. AMPICILLIN [Concomitant]
  8. GRANISETRON [Concomitant]
  9. ABRAXANE [Concomitant]
  10. CALCITONIN SALMON [Concomitant]
  11. CEFTAZIDIME [Concomitant]
  12. GENTAMYCIN-MP [Concomitant]
  13. AUGMENTIN '125' [Concomitant]
  14. SULFAMETHOXAZOLE [Concomitant]
  15. METHOTREXATE [Concomitant]
  16. DECADRON [Concomitant]
  17. DOXORUBICIN HCL [Concomitant]
  18. CHEMOTHERAPEUTICS [Concomitant]
  19. BLOOD TRANSFUSION, AUXILIARY PRODUCTS [Concomitant]
  20. DEXAMETHASONE [Concomitant]
  21. VINCRISTINE [Concomitant]
  22. ONDANSETRON [Concomitant]
  23. ZITHROMAX [Concomitant]
  24. MERCAPTOPURINE [Concomitant]

REACTIONS (26)
  - TOOTH EXTRACTION [None]
  - OVERWEIGHT [None]
  - ANAEMIA [None]
  - LIP ULCERATION [None]
  - CONJUNCTIVITIS [None]
  - UPPER RESPIRATORY TRACT INFECTION [None]
  - VULVAL DISORDER [None]
  - MYALGIA [None]
  - GINGIVAL BLEEDING [None]
  - BLOOD CREATININE INCREASED [None]
  - ABDOMINAL INFECTION [None]
  - PNEUMONITIS [None]
  - SINUS TACHYCARDIA [None]
  - ARTIFICIAL CROWN PROCEDURE [None]
  - BACK PAIN [None]
  - BACTERIAL INFECTION [None]
  - BLOOD UREA INCREASED [None]
  - ACUTE LYMPHOCYTIC LEUKAEMIA [None]
  - NEUTROPENIA [None]
  - ADHESION [None]
  - HEPATOMEGALY [None]
  - ARTHRALGIA [None]
  - ARTHRITIS BACTERIAL [None]
  - OSTEOMYELITIS [None]
  - VIRAL INFECTION [None]
  - URINARY TRACT INFECTION [None]
